FAERS Safety Report 24527270 (Version 1)
Quarter: 2024Q4

REPORT INFORMATION
  Report Type: Report from Study
  Country: US (occurrence: US)
  Receive Date: 20241021
  Receipt Date: 20241021
  Transmission Date: 20250114
  Serious: No
  Sender: ROCHE
  Company Number: US-ROCHE-3521499

PATIENT
  Age: 49 Year
  Sex: Female

DRUGS (4)
  1. COTELLIC [Suspect]
     Active Substance: COBIMETINIB
     Indication: Pituitary tumour
     Route: 065
  2. COTELLIC [Suspect]
     Active Substance: COBIMETINIB
     Indication: Polydipsia
  3. ZELBORAF [Suspect]
     Active Substance: VEMURAFENIB
     Indication: Polydipsia
     Dosage: 3 TABLETS BY MOUTH EVERY DAY FOR 21 DAYS
     Route: 048
  4. ZELBORAF [Suspect]
     Active Substance: VEMURAFENIB
     Indication: Pituitary tumour
     Dosage: 960MG (4 TABLETS) BY MOUTH EVERY 12 HOURS
     Route: 048

REACTIONS (3)
  - Off label use [Unknown]
  - No adverse event [Unknown]
  - Product dispensing error [Unknown]
